FAERS Safety Report 4848082-7 (Version None)
Quarter: 2005Q4

REPORT INFORMATION
  Report Type: 
  Country: None (occurrence: None)
  Receive Date: 20051208
  Receipt Date: 20051207
  Transmission Date: 20060501
  Serious: Yes (Hospitalization)
  Sender: FDA-Public Use
  Company Number: ES-BRISTOL-MYERS SQUIBB COMPANY-13206990

PATIENT
  Age: 59 Year
  Sex: Male

DRUGS (3)
  1. KARVEA TABS 300 MG [Suspect]
     Indication: ESSENTIAL HYPERTENSION
     Route: 048
     Dates: start: 20050901, end: 20051008
  2. NORPRAMIN [Concomitant]
     Route: 048
     Dates: end: 20051008
  3. SPIRIVA [Concomitant]
     Route: 055

REACTIONS (1)
  - PANCREATITIS [None]
